FAERS Safety Report 10200306 (Version 3)
Quarter: 2014Q2

REPORT INFORMATION
  Report Type: Spontaneous
  Country: DE (occurrence: DE)
  Receive Date: 20140527
  Receipt Date: 20140619
  Transmission Date: 20141212
  Serious: Yes (Other)
  Sender: FDA-Public Use
  Company Number: PHHY2014DE061584

PATIENT
  Sex: Female

DRUGS (2)
  1. VOLTAREN RESINAT [Suspect]
     Indication: BACK PAIN
     Dosage: 75 MG, DAILY
     Route: 048
     Dates: end: 201311
  2. VOLTAREN RESINAT [Suspect]
     Dosage: 75 MG, EVERY OTHER DAY/EVERY THIRD DAY
     Route: 048
     Dates: start: 201311

REACTIONS (1)
  - Inflammation [Not Recovered/Not Resolved]
